FAERS Safety Report 24146127 (Version 1)
Quarter: 2024Q3

REPORT INFORMATION
  Report Type: Spontaneous
  Country: IN (occurrence: IN)
  Receive Date: 20240729
  Receipt Date: 20240729
  Transmission Date: 20241016
  Serious: Yes (Other)
  Sender: SOLARIS PHARMA
  Company Number: IN-SPC-000463

PATIENT
  Age: 61 Year
  Sex: Male

DRUGS (1)
  1. METRONIDAZOLE [Suspect]
     Active Substance: METRONIDAZOLE
     Indication: Liver abscess
     Dosage: 34 G OVER TWO WEEKS AND 34 G FOR TWO WEEKS POST-DISCHARGE
     Route: 065

REACTIONS (6)
  - Product use in unapproved indication [Unknown]
  - Neuropathy peripheral [Recovering/Resolving]
  - Neurotoxicity [Recovering/Resolving]
  - Encephalopathy [Unknown]
  - Disease progression [Recovering/Resolving]
  - Abscess [Recovering/Resolving]
